FAERS Safety Report 10048589 (Version 1)
Quarter: 2014Q1

REPORT INFORMATION
  Report Type: Spontaneous
  Country: US (occurrence: US)
  Receive Date: 20140331
  Receipt Date: 20140331
  Transmission Date: 20141002
  Serious: Yes (Hospitalization)
  Sender: FDA-Public Use
  Company Number: US-ACTELION-A-NJ2014-96414

PATIENT
  Sex: 0

DRUGS (1)
  1. OPSUMIT [Suspect]
     Indication: PRODUCT USED FOR UNKNOWN INDICATION
     Route: 048

REACTIONS (5)
  - Sepsis [Unknown]
  - Hyperkalaemia [Unknown]
  - Pneumonia [Unknown]
  - Anaemia [Unknown]
  - Urinary tract infection [Unknown]
